FAERS Safety Report 8879324 (Version 1)
Quarter: 2012Q4

REPORT INFORMATION
  Report Type: Report from Study
  Country: FR (occurrence: FR)
  Receive Date: 20121031
  Receipt Date: 20121031
  Transmission Date: 20130627
  Serious: Yes (Hospitalization)
  Sender: FDA-Public Use
  Company Number: FR-BAXTER-2012BAX021088

PATIENT
  Age: 5 Year
  Sex: Female
  Weight: 17 kg

DRUGS (27)
  1. HOLOXAN 2000 MG, POUDRE POUR USAGE PARENT?RAL [Suspect]
     Indication: SARCOMA
     Dosage: 6 g/m2
     Route: 042
     Dates: start: 20110604
  2. HOLOXAN 2000 MG, POUDRE POUR USAGE PARENT?RAL [Suspect]
     Dosage: 6 g/m2
     Route: 042
     Dates: start: 20110611
  3. HOLOXAN 2000 MG, POUDRE POUR USAGE PARENT?RAL [Suspect]
     Dosage: 6 g/m2
     Route: 042
     Dates: start: 20110627
  4. HOLOXAN 2000 MG, POUDRE POUR USAGE PARENT?RAL [Suspect]
     Dosage: 6 g/m2
     Route: 042
     Dates: start: 20110718
  5. HOLOXAN 2000 MG, POUDRE POUR USAGE PARENT?RAL [Suspect]
     Dosage: 6 g/m2
     Route: 042
     Dates: start: 20110810
  6. HOLOXAN 2000 MG, POUDRE POUR USAGE PARENT?RAL [Suspect]
     Dosage: 6 g/m2
     Route: 042
     Dates: start: 20110821
  7. HOLOXAN 2000 MG, POUDRE POUR USAGE PARENT?RAL [Suspect]
     Dosage: 6 g/m2
     Route: 042
     Dates: start: 20110830
  8. VINCRISTINE [Suspect]
     Indication: SARCOMA
     Route: 042
     Dates: start: 20110604
  9. VINCRISTINE [Suspect]
     Route: 042
     Dates: start: 20110627
  10. VINCRISTINE [Suspect]
     Route: 042
     Dates: start: 20110718
  11. VINCRISTINE [Suspect]
     Route: 042
     Dates: start: 20110810
  12. VINCRISTINE [Suspect]
     Route: 042
     Dates: start: 20110830
  13. ACTINOMYCIN D [Suspect]
     Indication: SARCOMA
     Route: 042
     Dates: start: 20110604
  14. ACTINOMYCIN D [Suspect]
     Route: 042
     Dates: start: 20110627
  15. ACTINOMYCIN D [Suspect]
     Route: 042
     Dates: start: 20110718
  16. ACTINOMYCIN D [Suspect]
     Route: 042
     Dates: start: 20110810
  17. ACTINOMYCIN D [Suspect]
     Route: 042
     Dates: start: 20110830
  18. DOXORUBICIN [Suspect]
     Indication: SARCOMA
     Route: 042
     Dates: start: 20110604
  19. DOXORUBICIN [Suspect]
     Route: 042
     Dates: start: 20110627
  20. DOXORUBICIN [Suspect]
     Route: 042
     Dates: start: 20110718
  21. DOXORUBICIN [Suspect]
     Route: 042
     Dates: start: 20110810
  22. DOXORUBICIN [Suspect]
     Dosage: also reported 20.2 mg
     Route: 042
     Dates: start: 20110811
  23. AZANTAC [Concomitant]
     Indication: DRUG USE FOR UNKNOWN INDICATION
     Dates: start: 20110901
  24. ZOPHREN [Concomitant]
     Indication: DRUG USE FOR UNKNOWN INDICATION
     Dates: start: 20110909, end: 20110909
  25. FORLAX [Concomitant]
     Indication: DRUG USE FOR UNKNOWN INDICATION
     Dates: start: 20120909, end: 20120912
  26. PARACETAMOL [Concomitant]
     Indication: DRUG USE FOR UNKNOWN INDICATION
     Dates: start: 20110909, end: 20110910
  27. SPASFON [Concomitant]
     Indication: DRUG USE FOR UNKNOWN INDICATION
     Dates: start: 20110910, end: 20110911

REACTIONS (2)
  - Staphylococcal infection [Recovered/Resolved]
  - Febrile bone marrow aplasia [Unknown]
